FAERS Safety Report 11340580 (Version 4)
Quarter: 2015Q4

REPORT INFORMATION
  Report Type: Spontaneous
  Country: FR (occurrence: FR)
  Receive Date: 20150805
  Receipt Date: 20151106
  Transmission Date: 20160304
  Serious: Yes (Hospitalization)
  Sender: FDA-Public Use
  Company Number: FR-PFIZER INC-2015255976

PATIENT
  Age: 62 Year
  Sex: Male

DRUGS (6)
  1. CELIPROLOL HCL [Suspect]
     Active Substance: CELIPROLOL
     Dosage: 200 MG, 1X/DAY
     Route: 048
  2. SERESTA [Suspect]
     Active Substance: OXAZEPAM
     Dosage: 2 DF, 3X/DAY AS NEEDED
  3. ODRIK [Suspect]
     Active Substance: TRANDOLAPRIL
     Dosage: 4 MG, 1X/DAY
     Route: 048
  4. AMLOR [Suspect]
     Active Substance: AMLODIPINE BESYLATE
     Dosage: 10 MG, DAILY
     Route: 048
  5. ANAFRANIL [Suspect]
     Active Substance: CLOMIPRAMINE HYDROCHLORIDE
     Indication: SUICIDE ATTEMPT
     Dosage: 75 MG, DAILY
     Route: 048
  6. ANAFRANIL [Suspect]
     Active Substance: CLOMIPRAMINE HYDROCHLORIDE
     Dosage: 3 G, SINGLE
     Route: 048
     Dates: start: 20150626, end: 20150626

REACTIONS (8)
  - Hypokalaemia [Recovering/Resolving]
  - Sinus tachycardia [Recovered/Resolved]
  - Electrocardiogram T wave amplitude decreased [Recovered/Resolved]
  - Electrocardiogram QT prolonged [Not Recovered/Not Resolved]
  - Electrocardiogram QRS complex prolonged [Recovered/Resolved]
  - Generalised tonic-clonic seizure [Recovered/Resolved]
  - Anticholinergic syndrome [Unknown]
  - Hallucination [Recovered/Resolved]

NARRATIVE: CASE EVENT DATE: 20150626
